FAERS Safety Report 6551124-4 (Version None)
Quarter: 2010Q1

REPORT INFORMATION
  Report Type: 
  Country: None (occurrence: None)
  Receive Date: 20100121
  Receipt Date: 20100104
  Transmission Date: 20100710
  Serious: Yes (Hospitalization)
  Sender: FDA-Public Use
  Company Number: 2009-00025

PATIENT
  Age: 92 Year
  Sex: Male

DRUGS (5)
  1. LISINOPRIL [Suspect]
     Indication: CARDIAC DISORDER
     Dosage: 2.5 MG, 1 IN 24 HR, ORAL
     Route: 048
     Dates: end: 20091103
  2. NICORANDIL [Suspect]
     Indication: CARDIAC DISORDER
     Dosage: 40 MG, 2 IN 24 HR, ORAL
     Route: 048
     Dates: end: 20091103
  3. PRAVASTATIN [Concomitant]
  4. CALCICHEW D (CALCIUM CARBONATE, CHOLECALCIFEROL, CHOLECALCIFEROL CONCE [Concomitant]
  5. LATANOPROST [Concomitant]

REACTIONS (3)
  - FALL [None]
  - FRACTURE [None]
  - HYPOTENSION [None]
